FAERS Safety Report 23273526 (Version 1)
Quarter: 2023Q4

REPORT INFORMATION
  Report Type: Spontaneous
  Country: US (occurrence: US)
  Receive Date: 20231207
  Receipt Date: 20231207
  Transmission Date: 20240110
  Serious: No
  Sender: FDA-Public Use
  Company Number: US-PFIZER INC-202300414885

PATIENT
  Age: 92 Year
  Sex: Female

DRUGS (2)
  1. PAXLOVID [Suspect]
     Active Substance: NIRMATRELVIR\RITONAVIR
     Indication: COVID-19 treatment
     Dosage: MORNING AND EVENING DOSE
     Dates: start: 20231127
  2. SIMVASTATIN [Suspect]
     Active Substance: SIMVASTATIN

REACTIONS (3)
  - Insomnia [Unknown]
  - Vomiting [Unknown]
  - Contraindicated product administered [Unknown]

NARRATIVE: CASE EVENT DATE: 20231127
